FAERS Safety Report 5858699-9 (Version None)
Quarter: 2008Q3

REPORT INFORMATION
  Report Type: 
  Country: None (occurrence: None)
  Receive Date: 20080826
  Receipt Date: 20080825
  Transmission Date: 20090109
  Serious: Yes (Death, Hospitalization)
  Sender: FDA-Public Use
  Company Number: FR-BOEHRINGER INGELHEIM GMBH, GERMANY-2008-FF-00575FF

PATIENT
  Sex: Female

DRUGS (16)
  1. ATROVENT [Suspect]
     Indication: CHRONIC OBSTRUCTIVE PULMONARY DISEASE
     Route: 055
     Dates: start: 20061115, end: 20061120
  2. COMBIVENT [Suspect]
     Route: 055
  3. SPIRIVA [Suspect]
     Route: 055
  4. BRICANYL [Concomitant]
     Indication: CHRONIC OBSTRUCTIVE PULMONARY DISEASE
     Dates: start: 20061115, end: 20061120
  5. OXEOL [Concomitant]
     Indication: CHRONIC OBSTRUCTIVE PULMONARY DISEASE
     Route: 048
     Dates: start: 20061116, end: 20061120
  6. BRONCHOKOD [Concomitant]
     Indication: CHRONIC OBSTRUCTIVE PULMONARY DISEASE
     Route: 048
     Dates: start: 20061116, end: 20061120
  7. LOXAPINE HCL [Concomitant]
     Indication: CHRONIC OBSTRUCTIVE PULMONARY DISEASE
     Route: 048
     Dates: start: 20061119, end: 20061119
  8. TEGRETOL [Concomitant]
     Route: 048
  9. TAVANIC [Concomitant]
     Route: 042
     Dates: start: 20061115
  10. TAVANIC [Concomitant]
     Route: 048
     Dates: start: 20061117
  11. STILNOX [Concomitant]
     Dosage: 1/2 TO 1 TABLET A DAY
     Route: 048
     Dates: start: 20061118
  12. OXAZEPAM [Concomitant]
     Dosage: 1 - 0 - 1
  13. RAMIPRIL [Concomitant]
  14. VENTOLIN [Concomitant]
     Route: 055
  15. SERETIDE [Concomitant]
     Route: 055
  16. NEXIUM [Concomitant]
     Dosage: ONE, EVENING

REACTIONS (4)
  - ANGINA PECTORIS [None]
  - DEATH [None]
  - OVERDOSE [None]
  - STRESS CARDIOMYOPATHY [None]
